FAERS Safety Report 4737342-6 (Version None)
Quarter: 2005Q3

REPORT INFORMATION
  Report Type: 
  Country: None (occurrence: None)
  Receive Date: 20050805
  Receipt Date: 20050726
  Transmission Date: 20060218
  Serious: Yes (Other)
  Sender: FDA-Public Use
  Company Number: 2005010873

PATIENT
  Age: 48 Year
  Sex: Female
  Weight: 112.4921 kg

DRUGS (12)
  1. CALAN [Suspect]
     Indication: HYPERTENSION
     Dosage: 180 MG (180 MG, EVERY EVENING), ORAL
     Route: 048
     Dates: start: 20031201, end: 20031201
  2. LIPITOR [Suspect]
     Indication: BLOOD CHOLESTEROL INCREASED
     Dosage: 2 YEARS AGO
  3. COVERA-HS [Suspect]
     Indication: HYPERTENSION
     Dosage: 240 MG (240 MG, DAILY INTERVAL: EVERY EVENING) 4-5 YEARS AGO - ONGOING
  4. VERAPAMIL [Suspect]
     Indication: HYPERTENSION
     Dosage: 180 MG (180 MG, DAILY INTERVAL: EVERY EVENING)
  5. THEO-DUR [Suspect]
     Indication: ASTHMA
  6. INSULIN [Suspect]
     Indication: DIABETES MELLITUS
  7. MONTELUKAST (MONTELUKAST) [Concomitant]
  8. ALBUTEROL [Concomitant]
  9. ZOCOR [Concomitant]
  10. POTASSIUM CHLORIDE [Concomitant]
  11. LASIX [Concomitant]
  12. LISINOPRIL [Concomitant]

REACTIONS (10)
  - BLOOD GLUCOSE DECREASED [None]
  - BLOOD PRESSURE INCREASED [None]
  - CHEST PAIN [None]
  - FEELING ABNORMAL [None]
  - HEART RATE INCREASED [None]
  - MOVEMENT DISORDER [None]
  - PRESCRIBED OVERDOSE [None]
  - REFUSAL OF TREATMENT BY PATIENT [None]
  - TREMOR [None]
  - WEIGHT DECREASED [None]
